FAERS Safety Report 23457401 (Version 2)
Quarter: 2024Q1

REPORT INFORMATION
  Report Type: Spontaneous
  Country: JP (occurrence: None)
  Receive Date: 20240130
  Receipt Date: 20240311
  Transmission Date: 20240410
  Serious: Yes (Death, Other)
  Sender: FDA-Public Use
  Company Number: 2024A022738

PATIENT
  Age: 82 Year
  Sex: Male

DRUGS (3)
  1. IMFINZI [Suspect]
     Active Substance: DURVALUMAB
     Indication: Non-small cell lung cancer
     Dosage: DOSE UNKNOWN UNKNOWN
     Route: 041
     Dates: start: 202311
  2. IMJUDO [Suspect]
     Active Substance: TREMELIMUMAB\TREMELIMUMAB-ACTL
     Indication: Non-small cell lung cancer
     Dosage: DOSE UNKNOWN UNKNOWN
     Route: 041
     Dates: start: 202311
  3. COENZYME A/INSULIN HUMAN/ADENOSINE TRIPHOSPHATE, DISODIUM SALT [Concomitant]

REACTIONS (2)
  - Malignant neoplasm progression [Fatal]
  - Febrile neutropenia [Unknown]

NARRATIVE: CASE EVENT DATE: 20240102
